FAERS Safety Report 16063779 (Version 3)
Quarter: 2019Q2

REPORT INFORMATION
  Report Type: Report from Study
  Country: US (occurrence: US)
  Receive Date: 20190312
  Receipt Date: 20190410
  Transmission Date: 20190711
  Serious: Yes (Other)
  Sender: FDA-Public Use
  Company Number: US-BAYER-2019-040997

PATIENT
  Age: 72 Year
  Sex: Male

DRUGS (4)
  1. STIVARGA [Suspect]
     Active Substance: REGORAFENIB
     Indication: COLORECTAL CANCER
     Dosage: 120 MG DAILY
     Route: 048
     Dates: start: 20190311
  2. STIVARGA [Suspect]
     Active Substance: REGORAFENIB
     Indication: COLORECTAL CANCER
     Dosage: DAILY DOSE 120 MG
     Route: 048
     Dates: start: 20190228, end: 20190306
  3. STIVARGA [Suspect]
     Active Substance: REGORAFENIB
     Indication: COLORECTAL CANCER
     Dosage: DAILY DOSE 80 MG
     Route: 048
     Dates: start: 20190221, end: 20190227
  4. STIVARGA [Suspect]
     Active Substance: REGORAFENIB
     Indication: COLORECTAL CANCER
     Dosage: 160 MG
     Route: 048
     Dates: start: 20190307, end: 201903

REACTIONS (19)
  - Middle insomnia [None]
  - Dysphonia [None]
  - Retching [None]
  - Liver function test increased [Recovered/Resolved]
  - Fatigue [None]
  - Vomiting [None]
  - Epistaxis [None]
  - Blister infected [Recovered/Resolved]
  - Product dose omission [None]
  - Constipation [Not Recovered/Not Resolved]
  - Vomiting [Recovered/Resolved]
  - Dehydration [None]
  - Off label use [None]
  - Vomiting [None]
  - Asthenia [None]
  - Hypertension [None]
  - Decreased appetite [None]
  - Poor quality sleep [None]
  - Dehydration [None]

NARRATIVE: CASE EVENT DATE: 2019
